FAERS Safety Report 9840178 (Version 1)
Quarter: 2014Q1

REPORT INFORMATION
  Report Type: Report from Study
  Country: FI (occurrence: FI)
  Receive Date: 20140124
  Receipt Date: 20140124
  Transmission Date: 20141002
  Serious: Yes (Other)
  Sender: FDA-Public Use
  Company Number: FI-ROCHE-1338947

PATIENT
  Sex: 0

DRUGS (5)
  1. ALTEPLASE [Suspect]
     Indication: ISCHAEMIC STROKE
     Route: 042
  2. DEXMEDETOMIDINE [Concomitant]
     Indication: SEDATION
     Dosage: 0.2 TO 0.7 MCG/KG PER HOUR
     Route: 042
  3. BUSPIRONE [Concomitant]
     Indication: SEDATION
     Dosage: VIA NASOGASTRIC TUBE (10MG FOR THOSE }75 YEARS)
     Route: 050
  4. MEPERIDINE [Concomitant]
     Indication: SEDATION
     Dosage: LOADING DOSE OF 50 TO 100 MG WITHIN 2 HOURS
     Route: 042
  5. MEPERIDINE [Concomitant]
     Dosage: EVERY 1 OR 2 HOURS IF NEEDED.
     Route: 011

REACTIONS (2)
  - Cardiac failure [Unknown]
  - Hypercapnia [Unknown]
